FAERS Safety Report 10558478 (Version 2)
Quarter: 2014Q4

REPORT INFORMATION
  Report Type: Spontaneous
  Country: US (occurrence: None)
  Receive Date: 20141029
  Receipt Date: 20141106
  Transmission Date: 20150529
  Serious: Yes (Other)
  Sender: FDA-Public Use
  Company Number: 2014SGN01321

PATIENT
  Age: 73 Year
  Sex: Male
  Weight: 88 kg

DRUGS (23)
  1. ADCETRIS [Suspect]
     Active Substance: BRENTUXIMAB VEDOTIN
     Indication: T-CELL LYMPHOMA
     Dosage: 1 UNK, Q21D
     Route: 042
     Dates: start: 20140804, end: 20140825
  2. ALBUTEROL SULPHATE [Concomitant]
     Active Substance: ALBUTEROL
  3. CEFPROZIL. [Concomitant]
     Active Substance: CEFPROZIL
  4. IBUPROFEN. [Concomitant]
     Active Substance: IBUPROFEN
  5. LIDOCAINE (LIDOCAINE HYDROCHLORIDE) [Concomitant]
  6. OMEGA (FISH OIL) [Concomitant]
  7. SINGULAIR [Concomitant]
     Active Substance: MONTELUKAST SODIUM
  8. KETOCONAZOLE. [Concomitant]
     Active Substance: KETOCONAZOLE
  9. METHOTREXATE [Concomitant]
     Active Substance: METHOTREXATE
  10. OXYCODONE (OXYCODONE) [Concomitant]
     Active Substance: OXYCODONE
  11. PREDNISONE (PREDNISONE ACETATE) [Concomitant]
  12. ECONAZOLE [Concomitant]
     Active Substance: ECONAZOLE
  13. EMLA (LIDOCAINE, PRILOCAINE) [Concomitant]
  14. TARGRETIN (BEXAROTENE) [Concomitant]
  15. TRIAMCINOLONE ACETONIDE. [Concomitant]
     Active Substance: TRIAMCINOLONE ACETONIDE
  16. MULTIVITAMIN (VITAMINS NOS) [Concomitant]
     Active Substance: VITAMINS
  17. NORCO (HYDROCODONE BITARTRATE, PARACETAMOL) [Concomitant]
  18. SYMBICORT [Concomitant]
     Active Substance: BUDESONIDE\FORMOTEROL FUMARATE DIHYDRATE
  19. ACETAMINOPHEN. [Concomitant]
     Active Substance: ACETAMINOPHEN
  20. SILVER SULFADIAZENE [Concomitant]
     Active Substance: SILVER SULFADIAZINE
  21. CALCIUM + VITAMIN D (CALCIUM, COLECALCIFEROL) [Concomitant]
  22. FOLIC ACID. [Concomitant]
     Active Substance: FOLIC ACID
  23. UNISOM (DIPHENHYDRAMINE HYDROCLORIDE) [Concomitant]

REACTIONS (4)
  - Swollen tongue [None]
  - Neuropathy peripheral [None]
  - Pancreatitis [None]
  - Off label use [None]

NARRATIVE: CASE EVENT DATE: 20140805
